FAERS Safety Report 16677976 (Version 1)
Quarter: 2019Q3

REPORT INFORMATION
  Report Type: Spontaneous
  Country: US (occurrence: US)
  Receive Date: 20190807
  Receipt Date: 20190807
  Transmission Date: 20191004
  Serious: No
  Sender: FDA-Public Use
  Company Number: US-PFIZER INC-2019334964

PATIENT
  Age: 54 Year
  Sex: Female

DRUGS (6)
  1. NORVASC [Suspect]
     Active Substance: AMLODIPINE BESYLATE
     Dosage: UNK
  2. LOSARTAN. [Suspect]
     Active Substance: LOSARTAN
     Dosage: UNK
  3. VIT D [Suspect]
     Active Substance: VITAMIN D NOS
     Dosage: UNK
  4. PROAIR HFA [Suspect]
     Active Substance: ALBUTEROL SULFATE
     Dosage: UNK
  5. SINGULAIR [Suspect]
     Active Substance: MONTELUKAST SODIUM
     Dosage: UNK
  6. FLONASE [Suspect]
     Active Substance: FLUTICASONE PROPIONATE
     Dosage: UNK

REACTIONS (1)
  - Drug hypersensitivity [Unknown]
